FAERS Safety Report 16920849 (Version 1)
Quarter: 2019Q4

REPORT INFORMATION
  Report Type: Spontaneous
  Country: FR (occurrence: FR)
  Receive Date: 20191015
  Receipt Date: 20191015
  Transmission Date: 20200122
  Serious: Yes (Hospitalization)
  Sender: FDA-Public Use
  Company Number: FR-009507513-1910FRA009714

PATIENT
  Age: 71 Year
  Sex: Female
  Weight: 56 kg

DRUGS (1)
  1. KEYTRUDA [Suspect]
     Active Substance: PEMBROLIZUMAB
     Indication: PNEUMONIA
     Dosage: 200MG/CURES
     Route: 041
     Dates: start: 20180228, end: 20190417

REACTIONS (4)
  - Colitis [Recovered/Resolved with Sequelae]
  - Polyarthritis [Unknown]
  - Hepatocellular injury [Unknown]
  - Cholestasis [Unknown]

NARRATIVE: CASE EVENT DATE: 201810
